FAERS Safety Report 10172574 (Version 1)
Quarter: 2014Q2

REPORT INFORMATION
  Report Type: Spontaneous
  Country: HU (occurrence: HU)
  Receive Date: 20140515
  Receipt Date: 20140515
  Transmission Date: 20141212
  Serious: Yes (Hospitalization)
  Sender: FDA-Public Use
  Company Number: HU-009507513-1405HUN005569

PATIENT
  Age: 60 Year
  Sex: Female

DRUGS (5)
  1. REBETOL [Suspect]
     Dosage: 1-0-2 CAPSULE/DAY
     Route: 048
     Dates: end: 2014
  2. PEGINTRON [Suspect]
     Indication: HEPATITIS C
     Dosage: 100 MCG COUNT BY BODY WEIGHT
     Route: 058
     Dates: start: 2013
  3. PEGINTRON [Suspect]
     Dosage: 80 MICROGRAM WEEK
     Route: 058
     Dates: end: 2014
  4. VICTRELIS [Suspect]
     Indication: HEPATITIS C
     Dosage: UNK
     Route: 048
     Dates: start: 2013, end: 2014
  5. REBETOL [Suspect]
     Indication: HEPATITIS C
     Dosage: 600-1000 MG/DAY, STARTING DOSE 2-0-3 CAPSULE/DAY
     Route: 048
     Dates: start: 2013

REACTIONS (25)
  - Angiopathy [Recovered/Resolved]
  - Generalised oedema [Recovered/Resolved]
  - Fatigue [Not Recovered/Not Resolved]
  - Pyrexia [Recovering/Resolving]
  - Headache [Unknown]
  - Arthralgia [Recovering/Resolving]
  - Hepatitis C RNA decreased [Unknown]
  - Abdominal pain upper [Unknown]
  - Nausea [Unknown]
  - Flatulence [Unknown]
  - Diarrhoea [Unknown]
  - Proctalgia [Unknown]
  - Pruritus [Unknown]
  - Pyrexia [Unknown]
  - Arthralgia [Unknown]
  - Urinary tract infection [Unknown]
  - Vulvitis [Unknown]
  - Dysgeusia [Unknown]
  - Alopecia [Unknown]
  - Rash [Unknown]
  - Dry mouth [Unknown]
  - Decreased appetite [Unknown]
  - Insomnia [Unknown]
  - Weight decreased [Unknown]
  - Drug effect incomplete [Unknown]
